FAERS Safety Report 4411846-8 (Version None)
Quarter: 2004Q3

REPORT INFORMATION
  Report Type: 
  Country: None (occurrence: None)
  Receive Date: 20040730
  Receipt Date: 20040526
  Transmission Date: 20050211
  Serious: No
  Sender: FDA-Public Use
  Company Number: US-GLAXOSMITHKLINE-A0512236A

PATIENT
  Age: 80 Year
  Sex: Female

DRUGS (3)
  1. VENTOLIN [Suspect]
     Indication: EMPHYSEMA
     Route: 055
     Dates: start: 20040526
  2. ATROVENT [Concomitant]
     Route: 055
  3. ALBUTEROL [Concomitant]
     Route: 055

REACTIONS (2)
  - DRUG INEFFECTIVE [None]
  - PERFORMANCE STATUS DECREASED [None]
